FAERS Safety Report 7604328-3 (Version None)
Quarter: 2011Q3

REPORT INFORMATION
  Report Type: 
  Country: None (occurrence: None)
  Receive Date: 20110712
  Receipt Date: 20110711
  Transmission Date: 20111222
  Serious: Yes (Death, Disabling, Other)
  Sender: FDA-Public Use
  Company Number: PHHY2011US42084

PATIENT
  Sex: Female

DRUGS (2)
  1. RECLAST [Suspect]
     Dosage: 5 MG, UNK
     Route: 042
     Dates: start: 20081201
  2. RECLAST [Suspect]
     Dosage: 5 MG, UNK
     Route: 042
     Dates: start: 20090101

REACTIONS (7)
  - APHASIA [None]
  - WEIGHT DECREASED [None]
  - DROOLING [None]
  - DEATH [None]
  - BULBAR PALSY [None]
  - TOOTH DISCOLOURATION [None]
  - MUSCLE DISORDER [None]
